FAERS Safety Report 11196660 (Version 1)
Quarter: 2015Q2

REPORT INFORMATION
  Report Type: Spontaneous
  Country: CH (occurrence: GB)
  Receive Date: 20150617
  Receipt Date: 20150617
  Transmission Date: 20150821
  Serious: Yes (Other)
  Sender: FDA-Public Use
  Company Number: CH-LPDUSPRD-20150436

PATIENT
  Age: 35 Year
  Sex: Female
  Weight: 71.21 kg

DRUGS (3)
  1. COCODAMOL [Concomitant]
     Active Substance: ACETAMINOPHEN\CODEINE PHOSPHATE
     Dosage: DOSE NOT PROVIDED
     Route: 065
  2. SALBUTAMOL [Concomitant]
     Active Substance: ALBUTEROL
     Dosage: DOSE NOT PROVIDED
     Route: 065
  3. FERINJECT [Suspect]
     Active Substance: FERRIC CARBOXYMALTOSE
     Dosage: 1 DOSAGE FORM, FOURTH INFUSION
     Route: 041
     Dates: start: 20150518

REACTIONS (9)
  - Arthralgia [Unknown]
  - Renal pain [Unknown]
  - Headache [Unknown]
  - Peripheral swelling [Unknown]
  - Dizziness [Unknown]
  - Malaise [Unknown]
  - Fatigue [Unknown]
  - Joint swelling [Unknown]
  - Pallor [Unknown]

NARRATIVE: CASE EVENT DATE: 20150518
